FAERS Safety Report 8586134-9 (Version None)
Quarter: 2012Q3

REPORT INFORMATION
  Report Type: 
  Country: None (occurrence: None)
  Receive Date: 20120810
  Receipt Date: 20120802
  Transmission Date: 20120928
  Serious: No
  Sender: FDA-Public Use
  Company Number: US-ASTRAZENECA-2012SE15106

PATIENT
  Age: 68 Year
  Sex: Male
  Weight: 111.1 kg

DRUGS (7)
  1. CRESTOR [Suspect]
     Indication: BLOOD TRIGLYCERIDES INCREASED
     Route: 048
     Dates: start: 20111101, end: 20120201
  2. BP MEDICAINE [Concomitant]
  3. ASPIRIN [Concomitant]
  4. FISH OIL [Concomitant]
  5. HEART MEDICATION [Concomitant]
  6. VITAMIN TAB [Concomitant]
  7. CRESTOR [Suspect]
     Indication: BLOOD CHOLESTEROL ABNORMAL
     Route: 048
     Dates: start: 20111101, end: 20120201

REACTIONS (8)
  - NAUSEA [None]
  - MUSCLE SPASMS [None]
  - MYALGIA [None]
  - GAIT DISTURBANCE [None]
  - ARTHRALGIA [None]
  - ABDOMINAL DISCOMFORT [None]
  - MALAISE [None]
  - ABDOMINAL PAIN UPPER [None]
